FAERS Safety Report 6815467-9 (Version None)
Quarter: 2010Q3

REPORT INFORMATION
  Report Type: 
  Country: None (occurrence: None)
  Receive Date: 20100702
  Receipt Date: 20100622
  Transmission Date: 20110219
  Serious: Yes (Other)
  Sender: FDA-Public Use
  Company Number: US-JNJFOC-20100607297

PATIENT
  Sex: Male
  Weight: 35.38 kg

DRUGS (2)
  1. REMICADE [Suspect]
     Indication: CROHN'S DISEASE
     Route: 065
  2. PENTASA [Concomitant]
     Route: 065

REACTIONS (4)
  - ABASIA [None]
  - HYPOKINESIA [None]
  - JOINT SWELLING [None]
  - PAIN [None]
